FAERS Safety Report 10052469 (Version 2)
Quarter: 2014Q2

REPORT INFORMATION
  Report Type: Spontaneous
  Country: AU (occurrence: AU)
  Receive Date: 20140402
  Receipt Date: 20140402
  Transmission Date: 20141212
  Serious: Yes (Other)
  Sender: FDA-Public Use
  Company Number: AU-NOVOPROD-404407

PATIENT
  Sex: Male

DRUGS (3)
  1. VICTOZA [Suspect]
     Indication: DIABETES MELLITUS
     Dosage: 1.2 MG, QD (ONCE DAILY)
     Route: 058
     Dates: start: 20131201
  2. NOVORAPID FLEXPEN [Concomitant]
     Indication: DIABETES MELLITUS
     Dosage: 3 U, TID (3ML BEFORE MEALS)
     Route: 058
  3. LANTUS [Concomitant]
     Indication: DIABETES MELLITUS
     Dosage: 40 U, QD (IN EVENING)
     Route: 058

REACTIONS (3)
  - Thyroid neoplasm [Unknown]
  - Neoplasm [Unknown]
  - Weight decreased [Unknown]
